FAERS Safety Report 9626324 (Version 2)
Quarter: 2013Q4

REPORT INFORMATION
  Report Type: Spontaneous
  Country: CH (occurrence: CH)
  Receive Date: 20131016
  Receipt Date: 20131217
  Transmission Date: 20140711
  Serious: Yes (Other)
  Sender: FDA-Public Use
  Company Number: CH-ELI_LILLY_AND_COMPANY-CH201310004357

PATIENT
  Age: 15 Year
  Sex: Male

DRUGS (7)
  1. STRATTERA [Suspect]
     Indication: ATTENTION DEFICIT/HYPERACTIVITY DISORDER
     Dosage: 60 MG, QD
     Route: 065
  2. STRATTERA [Suspect]
     Indication: DEPRESSION
  3. STRATTERA [Suspect]
     Indication: ANXIETY
  4. FLUCTINE [Suspect]
     Indication: MAJOR DEPRESSION
     Dosage: UNK, QD
     Route: 065
  5. SEROQUEL XR [Concomitant]
     Dosage: 300 MG, EACH EVENING
  6. SEROQUEL XR [Concomitant]
     Dosage: 400 MG, EACH EVENING
  7. ALCOHOL                            /00002101/ [Concomitant]
     Indication: ANXIETY

REACTIONS (3)
  - Aggression [Unknown]
  - Laceration [Unknown]
  - Agoraphobia [Unknown]
